FAERS Safety Report 10653705 (Version 2)
Quarter: 2014Q4

REPORT INFORMATION
  Report Type: Spontaneous
  Country: HU (occurrence: HU)
  Receive Date: 20141216
  Receipt Date: 20141216
  Transmission Date: 20150529
  Serious: Yes (Death, Hospitalization)
  Sender: FDA-Public Use
  Company Number: HU-PFIZER INC-2013337309

PATIENT
  Age: 70 Year
  Sex: Male

DRUGS (1)
  1. SUTENT [Suspect]
     Active Substance: SUNITINIB MALATE
     Indication: RENAL CANCER METASTATIC
     Dosage: 50 MG, 1X/DAY (SCHEME 4/2, 4 WEEKS TAKES, 2 WEEKS BREAK)
     Route: 048
     Dates: start: 20131031

REACTIONS (17)
  - Anaemia [Recovered/Resolved]
  - Somnolence [Recovered/Resolved]
  - Asthenia [Recovered/Resolved]
  - Nausea [Recovered/Resolved]
  - Dysgeusia [Recovered/Resolved]
  - Renal cancer metastatic [Unknown]
  - Fatigue [Recovered/Resolved]
  - Dysgeusia [Recovered/Resolved]
  - Asthenia [Unknown]
  - Death [Fatal]
  - Anaemia [Recovered/Resolved]
  - Somnolence [Recovered/Resolved]
  - Fatigue [Recovered/Resolved]
  - Nausea [Recovered/Resolved]
  - Decreased appetite [Recovering/Resolving]
  - Venous thrombosis [Not Recovered/Not Resolved]
  - Disease progression [Unknown]

NARRATIVE: CASE EVENT DATE: 2013
